FAERS Safety Report 8869363 (Version 1)
Quarter: 2012Q4

REPORT INFORMATION
  Report Type: 
  Country: US (occurrence: US)
  Receive Date: 20121023
  Receipt Date: 20121023
  Transmission Date: 20130627
  Serious: No
  Sender: FDA-Public Use
  Company Number: US-AMGEN-USASP2012052582

PATIENT
  Age: 63 Year
  Sex: Female

DRUGS (8)
  1. ENBREL [Suspect]
     Indication: PRODUCT USED FOR UNKNOWN INDICATION
     Dosage: 50 mg, qwk
     Route: 058
  2. PLAQUENIL                          /00072602/ [Concomitant]
     Dosage: 200 mg, UNK
  3. VITAMIN C                          /00008001/ [Concomitant]
     Dosage: 500 mg, UNK
  4. FOLIC ACID [Concomitant]
     Dosage: UNK
  5. ASA [Concomitant]
     Dosage: 81 mg, EC
  6. METHOTREXATE [Concomitant]
     Dosage: 25 mg/ml, UNK
  7. METHOTREXATE [Concomitant]
     Dosage: 2.5 mg tablet
  8. VITAMIN D3 [Concomitant]
     Dosage: UNK

REACTIONS (2)
  - Throat irritation [Recovering/Resolving]
  - Fatigue [Recovering/Resolving]
